FAERS Safety Report 5858953-0 (Version None)
Quarter: 2008Q3

REPORT INFORMATION
  Report Type: 
  Country: None (occurrence: None)
  Receive Date: 20080825
  Receipt Date: 20080817
  Transmission Date: 20090109
  Serious: Yes (Death)
  Sender: FDA-Public Use
  Company Number: 2008SP016699

PATIENT
  Sex: Male

DRUGS (1)
  1. INTEGRILIN [Suspect]
     Indication: CARDIAC DISORDER

REACTIONS (2)
  - CARDIAC ARREST [None]
  - MALAISE [None]
